FAERS Safety Report 19003767 (Version 3)
Quarter: 2021Q2

REPORT INFORMATION
  Report Type: Spontaneous
  Country: CA (occurrence: CA)
  Receive Date: 20210312
  Receipt Date: 20210417
  Transmission Date: 20210717
  Serious: Yes (Hospitalization, Other)
  Sender: FDA-Public Use
  Company Number: CA-CELLTRION INC.-2020CA035020

PATIENT

DRUGS (7)
  1. ENTOCORT [Concomitant]
     Active Substance: BUDESONIDE
     Dosage: 1 DF, DOSAGE INFORMATION NOT AVAILABLE
     Route: 065
  2. PERCOCET [Concomitant]
     Active Substance: ACETAMINOPHEN\OXYCODONE HYDROCHLORIDE
     Dosage: 1 DF, DOSAGE INFORMATION NOT AVAILABLE
     Route: 065
  3. INFLECTRA [Suspect]
     Active Substance: INFLIXIMAB-DYYB
     Dosage: 500 MG  (Q6 WEEK DOSE)
     Route: 041
     Dates: start: 20210401, end: 20210401
  4. METRONIDAZOLE. [Concomitant]
     Active Substance: METRONIDAZOLE
     Dosage: 1 DF, DOSAGE INFORMATION NOT AVAILABLE, STATUS UNKNOWN
     Route: 065
  5. INFLECTRA [Suspect]
     Active Substance: INFLIXIMAB-DYYB
     Indication: CROHN^S DISEASE
     Dosage: 500 MG (Q 0 WEEK DOSE)
     Route: 042
     Dates: start: 20210202, end: 20210202
  6. CIPROFLOXACIN. [Concomitant]
     Active Substance: CIPROFLOXACIN
     Dosage: 1 DF, DOSAGE INFORMATION NOT AVAILABLE, STATUS UNKNOWN
     Route: 065
  7. INFLECTRA [Suspect]
     Active Substance: INFLIXIMAB-DYYB
     Dosage: 500 MG  (Q 2 WEEK DOSE )
     Route: 042
     Dates: start: 20210303, end: 20210303

REACTIONS (1)
  - Rectal abscess [Not Recovered/Not Resolved]
